FAERS Safety Report 6932574-0 (Version None)
Quarter: 2010Q3

REPORT INFORMATION
  Report Type: 
  Country: None (occurrence: None)
  Receive Date: 20100819
  Receipt Date: 20100811
  Transmission Date: 20110219
  Serious: Yes (Hospitalization)
  Sender: FDA-Public Use
  Company Number: CA-AMGEN-QUU430678

PATIENT
  Age: 42 Year
  Sex: Female
  Weight: 77 kg

DRUGS (5)
  1. NEUPOGEN [Suspect]
     Indication: PRODUCT USED FOR UNKNOWN INDICATION
     Route: 058
  2. DEXAMETHASONE [Concomitant]
  3. HERCEPTIN [Concomitant]
     Route: 065
  4. PROCHLORPERAZINE [Concomitant]
     Route: 065
  5. TAXOTERE [Concomitant]
     Route: 065

REACTIONS (4)
  - COUGH [None]
  - FEELING HOT [None]
  - LOSS OF CONSCIOUSNESS [None]
  - NAUSEA [None]
